FAERS Safety Report 9120187 (Version 1)
Quarter: 2013Q1

REPORT INFORMATION
  Report Type: Spontaneous
  Country: US (occurrence: US)
  Receive Date: 20130226
  Receipt Date: 20130226
  Transmission Date: 20140127
  Serious: No
  Sender: FDA-Public Use
  Company Number: US-PFIZER INC-2013068104

PATIENT
  Age: 79 Year
  Sex: Female

DRUGS (6)
  1. GABAPENTIN [Suspect]
     Indication: HERPES ZOSTER
     Dosage: UNK
  2. LIDOCAINE HCL [Suspect]
     Indication: HERPES ZOSTER
     Dosage: UNK
  3. OXYCODONE HYDROCHLORIDE [Suspect]
     Indication: HERPES ZOSTER
     Dosage: UNK
  4. TRAMADOL HCL [Suspect]
     Indication: HERPES ZOSTER
     Dosage: UNK
  5. VICODIN [Suspect]
     Indication: HERPES ZOSTER
     Dosage: UNK
  6. OXYMORPHONE [Suspect]
     Indication: HERPES ZOSTER
     Dosage: UNK

REACTIONS (2)
  - Dizziness [Unknown]
  - Malaise [Unknown]
